FAERS Safety Report 20151471 (Version 2)
Quarter: 2022Q1

REPORT INFORMATION
  Report Type: Spontaneous
  Country: US (occurrence: US)
  Receive Date: 20211206
  Receipt Date: 20220110
  Transmission Date: 20220423
  Serious: No
  Sender: FDA-Public Use
  Company Number: US-TEVA-2021-US-1980768

PATIENT
  Sex: Female

DRUGS (1)
  1. FORMOTEROL FUMARATE [Suspect]
     Active Substance: FORMOTEROL FUMARATE
     Dosage: DOSAGE FORM: INHALATION - SOLUTION, STRENGTH: 20 MCG / 2 ML
     Route: 065

REACTIONS (3)
  - Tongue discomfort [Unknown]
  - Liquid product physical issue [Unknown]
  - Device malfunction [Unknown]
